FAERS Safety Report 4498626-2 (Version None)
Quarter: 2004Q4

REPORT INFORMATION
  Report Type: 
  Country: None (occurrence: None)
  Receive Date: 20041108
  Receipt Date: 20041022
  Transmission Date: 20050328
  Serious: Yes (Hospitalization)
  Sender: FDA-Public Use
  Company Number: 2004-BP-10675BP

PATIENT
  Sex: Female

DRUGS (3)
  1. MOBIC [Suspect]
     Dosage: 7.5 MG, PO
     Route: 048
  2. VIOXX [Suspect]
  3. COUMADIN [Concomitant]

REACTIONS (2)
  - HAEMORRHAGE [None]
  - MUSCULOSKELETAL STIFFNESS [None]
